FAERS Safety Report 10203275 (Version 1)
Quarter: 2014Q2

REPORT INFORMATION
  Report Type: Spontaneous
  Country: IT (occurrence: IT)
  Receive Date: 20140529
  Receipt Date: 20140529
  Transmission Date: 20141212
  Serious: Yes (Hospitalization, Other)
  Sender: FDA-Public Use
  Company Number: IT-BRISTOL-MYERS SQUIBB COMPANY-20787826

PATIENT
  Age: 88 Year
  Sex: Female

DRUGS (1)
  1. COUMADIN TABS 5 MG [Suspect]
     Dosage: THERAPY TO 28APR14.1DF=1 UNIT
     Dates: start: 20110101

REACTIONS (2)
  - Haematoma [Recovered/Resolved]
  - Limb injury [Unknown]
